FAERS Safety Report 9554976 (Version 3)
Quarter: 2014Q2

REPORT INFORMATION
  Report Type: Spontaneous
  Country: BR (occurrence: BR)
  Receive Date: 20130926
  Receipt Date: 20140422
  Transmission Date: 20141212
  Serious: Yes (Other)
  Sender: FDA-Public Use
  Company Number: BR-BRISTOL-MYERS SQUIBB COMPANY-19405307

PATIENT
  Age: 56 Year
  Sex: Male
  Weight: 70 kg

DRUGS (8)
  1. REYATAZ CAPS 300 MG [Suspect]
     Indication: HIV INFECTION
     Dosage: 1CAPSULE/D
     Route: 048
  2. BIOVIR [Suspect]
     Indication: HIV INFECTION
  3. ZIDOVUDINE [Concomitant]
  4. CHLOROQUINE SULFATE [Concomitant]
     Indication: MALARIA
  5. METRONIDAZOLE [Concomitant]
  6. LAMIVUDINE [Concomitant]
     Indication: HIV INFECTION
  7. VITAMIN [Concomitant]
  8. BACTRIM [Concomitant]

REACTIONS (7)
  - Malaria [Recovered/Resolved]
  - Drug ineffective [Unknown]
  - Nervousness [Unknown]
  - Depression [Unknown]
  - Aggression [Unknown]
  - Paranoia [Unknown]
  - Neurosis [Unknown]
